FAERS Safety Report 8031688-4 (Version None)
Quarter: 2012Q1

REPORT INFORMATION
  Report Type: 
  Country: None (occurrence: None)
  Receive Date: 20120109
  Receipt Date: 20120105
  Transmission Date: 20120608
  Serious: No
  Sender: FDA-Public Use
  Company Number: US-PFIZER INC-2012003994

PATIENT
  Sex: Female

DRUGS (2)
  1. IBUPROFEN (ADVIL) [Suspect]
     Dosage: 200 MG, 1X/DAY
     Route: 048
     Dates: start: 20120104
  2. IBUPROFEN (ADVIL) [Suspect]
     Indication: ARTHRITIS
     Dosage: (TWO CAPLETS OF 200MG)400 MG, 1X/DAY
     Route: 048
     Dates: end: 20111201

REACTIONS (4)
  - SINUSITIS [None]
  - HYPERTENSION [None]
  - RESPIRATORY RATE INCREASED [None]
  - NASOPHARYNGITIS [None]
